FAERS Safety Report 18139566 (Version 1)
Quarter: 2020Q3

REPORT INFORMATION
  Report Type: Spontaneous
  Country: US (occurrence: US)
  Receive Date: 20200811
  Receipt Date: 20200811
  Transmission Date: 20201103
  Serious: Yes (Life-Threatening)
  Sender: FDA-Public Use
  Company Number: None

PATIENT
  Age: 67 Year
  Sex: Male
  Weight: 89 kg

DRUGS (2)
  1. DALTEPARIN (DALTEPARIN NA 5000UNIT/0.2ML SYRINGE) [Suspect]
     Active Substance: DALTEPARIN SODIUM
     Indication: PULMONARY EMBOLISM
     Route: 042
     Dates: start: 20200730, end: 20200804
  2. DALTEPARIN (DALTEPARIN NA 5000UNIT/0.2ML SYRINGE) [Suspect]
     Active Substance: DALTEPARIN SODIUM
     Indication: DEEP VEIN THROMBOSIS
     Route: 042
     Dates: start: 20200730, end: 20200804

REACTIONS (5)
  - Muscular weakness [None]
  - Cerebral haematoma [None]
  - Haemorrhage intracranial [None]
  - Thrombocytopenia [None]
  - Haemorrhage [None]

NARRATIVE: CASE EVENT DATE: 20200804
